FAERS Safety Report 17760387 (Version 1)
Quarter: 2020Q2

REPORT INFORMATION
  Report Type: Spontaneous
  Country: US (occurrence: US)
  Receive Date: 20200508
  Receipt Date: 20200508
  Transmission Date: 20200714
  Serious: No
  Sender: FDA-Public Use
  Company Number: None

PATIENT
  Age: 61 Year
  Sex: Female
  Weight: 88.65 kg

DRUGS (3)
  1. VALSARTAN TABLETS USP [Suspect]
     Active Substance: VALSARTAN
     Indication: HYPERTENSION
     Route: 048
     Dates: start: 20200507, end: 20200508
  2. RESTASIS [Concomitant]
     Active Substance: CYCLOSPORINE
     Dates: start: 20161121
  3. CYANOCOBALAMIN 1000 MCG/ML INJECTIBLE [Concomitant]
     Dates: start: 20110801

REACTIONS (6)
  - Fatigue [None]
  - Headache [None]
  - Product substitution issue [None]
  - Drug ineffective [None]
  - Myalgia [None]
  - Cognitive disorder [None]

NARRATIVE: CASE EVENT DATE: 20200507
